FAERS Safety Report 6099933-2 (Version None)
Quarter: 2009Q1

REPORT INFORMATION
  Report Type: 
  Country: None (occurrence: None)
  Receive Date: 20090226
  Receipt Date: 20090217
  Transmission Date: 20090719
  Serious: Yes (Hospitalization)
  Sender: FDA-Public Use
  Company Number: GXKR2009DK02091

PATIENT
  Sex: Male

DRUGS (5)
  1. AMLODIPINE [Suspect]
     Indication: CARDIAC FAILURE
     Dosage: 10 MG, QD, ORAL
     Route: 048
     Dates: start: 20071116
  2. TRANDOLAPRIL [Suspect]
     Indication: CARDIAC FAILURE
     Dosage: 10 MG, QD, ORAL
     Route: 048
     Dates: start: 20061129
  3. ACETYLSALICYLIC ACID (ACETYLSALICYLIC ACID) TABLET [Concomitant]
  4. SIMVASTATIN [Concomitant]
  5. VIAGRA (SILDENAFIL CITRATE) FILM-COATED TABLET [Concomitant]

REACTIONS (2)
  - DRUG INTERACTION [None]
  - GYNAECOMASTIA [None]
